FAERS Safety Report 6442361-8 (Version None)
Quarter: 2009Q4

REPORT INFORMATION
  Report Type: 
  Country: None (occurrence: None)
  Receive Date: 20091112
  Receipt Date: 20080124
  Transmission Date: 20100525
  Serious: Yes (Hospitalization)
  Sender: FDA-Public Use
  Company Number: 062750-2009-00020

PATIENT
  Age: 54 Year
  Sex: Male

DRUGS (1)
  1. ADULT NASAL GEL SWAB [Suspect]
     Dates: start: 20070101, end: 20080101

REACTIONS (6)
  - BLOOD ZINC INCREASED [None]
  - CYSTITIS [None]
  - KIDNEY INFECTION [None]
  - LISTLESS [None]
  - NO THERAPEUTIC RESPONSE [None]
  - RENAL IMPAIRMENT [None]
